FAERS Safety Report 13443415 (Version 1)
Quarter: 2017Q2

REPORT INFORMATION
  Report Type: Report from Study
  Country: US (occurrence: US)
  Receive Date: 20170414
  Receipt Date: 20170414
  Transmission Date: 20170830
  Serious: Yes (Hospitalization)
  Sender: FDA-Public Use
  Company Number: US-TEVA-758588USA

PATIENT
  Age: 76 Year
  Sex: Male

DRUGS (4)
  1. IRON [Concomitant]
     Active Substance: IRON
  2. ADVAIR HFA [Concomitant]
     Active Substance: FLUTICASONE PROPIONATE\SALMETEROL XINAFOATE
  3. IMMUNOGLOBULIN (IVIG) [Suspect]
     Active Substance: HUMAN IMMUNOGLOBULIN G
     Route: 065
  4. CINQAIR [Suspect]
     Active Substance: RESLIZUMAB
     Route: 065

REACTIONS (3)
  - Drug ineffective [Unknown]
  - Pleural effusion [Recovered/Resolved]
  - Dyspnoea [Recovered/Resolved]
